FAERS Safety Report 17428659 (Version 1)
Quarter: 2020Q1

REPORT INFORMATION
  Report Type: Report from Study
  Country: GB (occurrence: GB)
  Receive Date: 20200217
  Receipt Date: 20200217
  Transmission Date: 20200409
  Serious: Yes (Hospitalization)
  Sender: FDA-Public Use
  Company Number: GB-DSJP-DSE-2019-127491

PATIENT

DRUGS (18)
  1. BRINZOLAMIDE [Concomitant]
     Active Substance: BRINZOLAMIDE
     Indication: PRODUCT USED FOR UNKNOWN INDICATION
     Dosage: 10 UNK, QD
  2. SOLIFENACIN [Concomitant]
     Active Substance: SOLIFENACIN
     Indication: PRODUCT USED FOR UNKNOWN INDICATION
     Dosage: 5 UNK, QD
  3. BRINZOLAMIDE [Concomitant]
     Active Substance: BRINZOLAMIDE
  4. BLINDED PLACEBO (DU-176B) [Suspect]
     Active Substance: EDOXABAN TOSYLATE
     Indication: ATRIAL FIBRILLATION
     Dosage: 1 DF, QD
     Route: 048
     Dates: start: 20180106
  5. TAMSULOSIN [Concomitant]
     Active Substance: TAMSULOSIN
     Indication: PRODUCT USED FOR UNKNOWN INDICATION
     Dosage: 400 UNK, QD
  6. TAMSULOSIN [Concomitant]
     Active Substance: TAMSULOSIN
  7. BRINZOLAMIDE [Concomitant]
     Active Substance: BRINZOLAMIDE
  8. LATANOPROST. [Concomitant]
     Active Substance: LATANOPROST
  9. SOLIFENACIN [Concomitant]
     Active Substance: SOLIFENACIN
  10. TAMSULOSIN [Concomitant]
     Active Substance: TAMSULOSIN
  11. TIMOLOL. [Concomitant]
     Active Substance: TIMOLOL
  12. BLINDED ASPIRIN (DU-176B STUDY) [Suspect]
     Active Substance: ASPIRIN
     Indication: ATRIAL FIBRILLATION
     Dosage: 1 DF, QD
     Route: 048
     Dates: start: 20180106
  13. BLINDED DU-176B [Suspect]
     Active Substance: EDOXABAN TOSYLATE
     Indication: ATRIAL FIBRILLATION
     Dosage: 1 DF, QD
     Route: 048
     Dates: start: 20180106
  14. LATANOPROST. [Concomitant]
     Active Substance: LATANOPROST
     Indication: PRODUCT USED FOR UNKNOWN INDICATION
     Dosage: 50 UNK, QD
  15. LATANOPROST. [Concomitant]
     Active Substance: LATANOPROST
  16. SOLIFENACIN [Concomitant]
     Active Substance: SOLIFENACIN
  17. TIMOLOL. [Concomitant]
     Active Substance: TIMOLOL
     Indication: PRODUCT USED FOR UNKNOWN INDICATION
     Dosage: 5 UNK, QD
  18. TIMOLOL. [Concomitant]
     Active Substance: TIMOLOL

REACTIONS (5)
  - Fall [Recovered/Resolved]
  - Head injury [Recovered/Resolved]
  - Skin laceration [Recovered/Resolved]
  - Fall [Recovered/Resolved]
  - Peripheral swelling [Recovered/Resolved]

NARRATIVE: CASE EVENT DATE: 20180628
